FAERS Safety Report 9506105 (Version 1)
Quarter: 2013Q1

REPORT INFORMATION
  Report Type: Spontaneous
  Country: US (occurrence: None)
  Receive Date: 20130301
  Receipt Date: 20130301
  Transmission Date: 20140127
  Serious: Yes (Hospitalization)
  Sender: FDA-Public Use
  Company Number: DKLU1082120

PATIENT
  Age: 45 Year
  Sex: Female
  Weight: 113.1 kg

DRUGS (17)
  1. DESOXYN (METHAMPHETAMINE HCL) [Suspect]
     Indication: PRODUCT USED FOR UNKNOWN INDICATION
  2. VARENICLINE TARTRATE (VARENICLINE TARTRATE) [Suspect]
     Indication: SMOKING CESSATION THERAPY
     Dosage: 2 IN 1 D
     Route: 048
     Dates: start: 20120109, end: 20120130
  3. BUPROPION HYDROCHLORIDE [Suspect]
     Dosage: 2 IN 1 D
     Route: 048
     Dates: start: 20120109, end: 20120130
  4. TRANSDERMAL NICOTINE REPLACEMENT THERAPY PATCH (NICOTINE) (TRANSDERMAL PATCH) [Concomitant]
  5. METHOCARBAMOL (METHOCARBAMOL) [Concomitant]
  6. CLONAZEPAM [Concomitant]
  7. FLOVENT (FLUTICASONE PROPIONATE) [Concomitant]
  8. ALBUTEROL (SALBUTAMOL) [Concomitant]
  9. TAGAMET (CIMETIDINE) [Concomitant]
  10. TYLENOL W/CODEINE (PANADEINE CO) [Concomitant]
  11. B COMPLEX (VITAMIN B COMPLEX) [Concomitant]
  12. FISH OIL (FISH OIL) [Concomitant]
  13. GARLIC (ALLIUM SATIVUM) [Concomitant]
  14. CO-Q-10 (UBIDECARENONE) [Concomitant]
  15. CALCIUM WITH VITAMIN D (LEKOVIT CA) [Concomitant]
  16. GINSENG (PANAX GINSENG) [Concomitant]
  17. PROBIOTICS (PROBIOTICS) [Concomitant]

REACTIONS (2)
  - Bipolar I disorder [None]
  - Mania [None]
